FAERS Safety Report 7806612-7 (Version None)
Quarter: 2011Q4

REPORT INFORMATION
  Report Type: 
  Country: None (occurrence: None)
  Receive Date: 20111011
  Receipt Date: 20111005
  Transmission Date: 20120403
  Serious: Yes (Hospitalization, Other)
  Sender: FDA-Public Use
  Company Number: FR-ABBOTT-11P-056-0851961-00

PATIENT
  Sex: Female

DRUGS (2)
  1. HUMIRA [Suspect]
     Indication: CROHN'S DISEASE
     Dosage: INDUCTION DOSE WITH 160MG AND THEN 80MG
     Route: 058
     Dates: start: 20100401, end: 20100501
  2. HUMIRA [Suspect]
     Dosage: 160MG, THEN 80MG, THEN 40MG EOW
     Route: 058
     Dates: start: 20110101, end: 20110501

REACTIONS (7)
  - ANAL ABSCESS [None]
  - CROHN'S DISEASE [None]
  - PERINEAL ABSCESS [None]
  - VASCULITIS [None]
  - ANAL FISTULA [None]
  - ILEAL ULCER [None]
  - INTESTINAL ANASTOMOSIS [None]
